FAERS Safety Report 18889780 (Version 1)
Quarter: 2021Q1

REPORT INFORMATION
  Report Type: Spontaneous
  Country: US (occurrence: US)
  Receive Date: 20210213
  Receipt Date: 20210213
  Transmission Date: 20210420
  Serious: Yes (Other)
  Sender: FDA-Public Use
  Company Number: NVSC2021US026449

PATIENT
  Sex: Female

DRUGS (1)
  1. TASIGNA [Suspect]
     Active Substance: NILOTINIB
     Indication: CHRONIC MYELOID LEUKAEMIA
     Dosage: UNK
     Route: 065
     Dates: start: 201209, end: 201812

REACTIONS (7)
  - Anxiety [Unknown]
  - Cerebrovascular accident [Unknown]
  - Injury [Unknown]
  - Arterial occlusive disease [Unknown]
  - Emotional distress [Unknown]
  - Pain [Unknown]
  - Arteriosclerosis [Unknown]
